FAERS Safety Report 5696474-9 (Version None)
Quarter: 2008Q2

REPORT INFORMATION
  Report Type: 
  Country: None (occurrence: None)
  Receive Date: 20080408
  Receipt Date: 20071128
  Transmission Date: 20081010
  Serious: No
  Sender: FDA-Public Use
  Company Number: US-BOEHRINGER INGELHEIM GMBH, GERMANY-2006-BP-12780BP

PATIENT
  Sex: Male

DRUGS (18)
  1. MIRAPEX [Suspect]
     Indication: PARKINSON'S DISEASE
     Dates: start: 20010927, end: 20060701
  2. SELEGILINE HCL [Concomitant]
     Indication: PARKINSON'S DISEASE
     Dates: start: 20010901, end: 20060801
  3. VITAMIN E [Concomitant]
     Indication: PARKINSON'S DISEASE
     Dates: start: 20010901
  4. COQ10 [Concomitant]
     Dates: start: 20020101
  5. ZETIA [Concomitant]
     Indication: HYPERCHOLESTEROLAEMIA
     Route: 048
     Dates: start: 20050901
  6. AMANTADINE HCL [Concomitant]
     Indication: PARKINSON'S DISEASE
     Dates: start: 20060701
  7. AMBIEN [Concomitant]
     Dates: start: 20060701
  8. AZILECT [Concomitant]
     Dates: start: 20060801
  9. LODINE XL [Concomitant]
     Dates: start: 20010901
  10. IBUPROFEN [Concomitant]
     Dates: start: 20020601
  11. FLONASE [Concomitant]
     Dates: start: 20021101
  12. PREVACID [Concomitant]
     Dates: start: 20030101
  13. PROCTOCREAM-HC [Concomitant]
     Dates: start: 20030901
  14. OMEPRAZOLE [Concomitant]
     Dates: start: 20040301
  15. CARBIDOPA AND LEVODOPA [Concomitant]
     Dates: start: 20050301
  16. SINEMET [Concomitant]
     Indication: PARKINSON'S DISEASE
  17. CYCLOBENZAPRINE HCL [Concomitant]
     Indication: MUSCLE RELAXANT THERAPY
  18. ZANAFLEX [Concomitant]

REACTIONS (4)
  - ANXIETY [None]
  - DEPRESSION [None]
  - OBSESSIVE-COMPULSIVE DISORDER [None]
  - PATHOLOGICAL GAMBLING [None]
